FAERS Safety Report 15693915 (Version 1)
Quarter: 2018Q4

REPORT INFORMATION
  Report Type: Spontaneous
  Country: CA (occurrence: CA)
  Receive Date: 20181206
  Receipt Date: 20181206
  Transmission Date: 20190205
  Serious: Yes (Other)
  Sender: FDA-Public Use
  Company Number: CA-GLAXOSMITHKLINE-CA2018GSK219347

PATIENT
  Sex: Female

DRUGS (3)
  1. PREDNISOLONE. [Concomitant]
     Active Substance: PREDNISOLONE
     Indication: PRODUCT USED FOR UNKNOWN INDICATION
     Dosage: 15 UNK, QD
  2. BENLYSTA [Suspect]
     Active Substance: BELIMUMAB
     Indication: SYSTEMIC LUPUS ERYTHEMATOSUS
     Dosage: 500 MG, UNK
  3. BENLYSTA [Suspect]
     Active Substance: BELIMUMAB
     Dosage: 500 MG, UNK

REACTIONS (4)
  - Mobility decreased [Recovered/Resolved]
  - Joint swelling [Recovered/Resolved]
  - Systemic lupus erythematosus [Recovered/Resolved]
  - Arthralgia [Recovered/Resolved]
